FAERS Safety Report 13806107 (Version 2)
Quarter: 2017Q3

REPORT INFORMATION
  Report Type: Report from Study
  Country: FR (occurrence: FR)
  Receive Date: 20170728
  Receipt Date: 20170810
  Transmission Date: 20171127
  Serious: Yes (Other)
  Sender: FDA-Public Use
  Company Number: PHHO2017FR010631

PATIENT
  Age: 60 Year
  Sex: Female
  Weight: 49.6 kg

DRUGS (1)
  1. SOM230 [Suspect]
     Active Substance: PASIREOTIDE
     Indication: ENTEROSTOMY
     Dosage: 0.9 MG, BID (1.8 MG)
     Route: 058
     Dates: start: 20170626

REACTIONS (3)
  - Nausea [Recovered/Resolved]
  - Asthenia [Recovered/Resolved]
  - Refusal of treatment by patient [Recovered/Resolved]

NARRATIVE: CASE EVENT DATE: 20170627
